FAERS Safety Report 10064670 (Version 2)
Quarter: 2014Q2

REPORT INFORMATION
  Report Type: Report from Study
  Country: US (occurrence: US)
  Receive Date: 20140408
  Receipt Date: 20140522
  Transmission Date: 20141212
  Serious: Yes (Hospitalization)
  Sender: FDA-Public Use
  Company Number: US-SA-2014SA041932

PATIENT
  Age: 48 Year
  Sex: Female
  Weight: 54.88 kg

DRUGS (31)
  1. ALEMTUZUMAB [Suspect]
     Indication: MULTIPLE SCLEROSIS
     Route: 065
  2. ARICEPT [Concomitant]
     Route: 048
  3. ABILIFY [Concomitant]
     Route: 048
  4. DOXEPIN [Concomitant]
     Route: 048
  5. IBUPROFEN [Concomitant]
     Route: 048
  6. PAROXETINE [Concomitant]
     Route: 048
  7. SUMATRIPTAN [Concomitant]
     Indication: MIGRAINE
     Route: 048
  8. VITAMIN D [Concomitant]
     Route: 048
  9. LEVOTHYROXINE [Concomitant]
     Route: 048
  10. FOSAMAX [Concomitant]
     Route: 048
  11. AMPYRA [Concomitant]
     Route: 048
  12. TOPAMAX [Concomitant]
  13. FOLIC ACID [Concomitant]
     Route: 048
  14. MULTIVITAMINS [Concomitant]
     Route: 048
  15. THIAMINE [Concomitant]
     Route: 048
  16. TOPIRAMATE [Concomitant]
     Route: 048
  17. ZINC SULFATE [Concomitant]
     Route: 048
  18. ALENDRONATE [Concomitant]
     Route: 048
  19. CALTRATE [Concomitant]
  20. VITAMIN D3 [Concomitant]
     Route: 048
  21. HYDROXYZINE [Concomitant]
     Route: 048
  22. ASPIRIN [Concomitant]
     Route: 048
  23. LIDODERM [Concomitant]
     Dosage: PATCH APPLY DAILY AND REMOVE AT BEDTIME
  24. COLACE [Concomitant]
     Route: 048
  25. HEPARIN [Concomitant]
     Dosage: DOSE:5000 UNIT(S)
     Route: 058
  26. MIDODRINE [Concomitant]
  27. TRAZODONE [Concomitant]
     Route: 048
  28. MILK OF MAGNESIA [Concomitant]
     Route: 048
  29. TYLENOL [Concomitant]
     Route: 048
  30. DULCOLAX [Concomitant]
  31. MAALOX [Concomitant]
     Route: 048

REACTIONS (1)
  - Convulsion [Recovered/Resolved with Sequelae]
